FAERS Safety Report 16766396 (Version 1)
Quarter: 2019Q4

REPORT INFORMATION
  Report Type: Spontaneous
  Country: US (occurrence: US)
  Receive Date: 20190831
  Receipt Date: 20190831
  Transmission Date: 20200122
  Serious: No
  Sender: FDA-Public Use
  Company Number: None

PATIENT
  Age: 33 Year
  Sex: Female
  Weight: 49.5 kg

DRUGS (1)
  1. MONISTAT 1 COMBINATION PACK [Suspect]
     Active Substance: MICONAZOLE NITRATE
     Indication: FUNGAL INFECTION
     Dosage: ?          QUANTITY:1 VAGINAL INSERT;OTHER FREQUENCY:ONE TIME DOSE;?
     Route: 067
     Dates: start: 20190831

REACTIONS (4)
  - Application site pain [None]
  - Application site pruritus [None]
  - Pruritus genital [None]
  - Genital pain [None]

NARRATIVE: CASE EVENT DATE: 20190831
